FAERS Safety Report 8010879-2 (Version None)
Quarter: 2011Q4

REPORT INFORMATION
  Report Type: 
  Country: None (occurrence: None)
  Receive Date: 20111228
  Receipt Date: 20111108
  Transmission Date: 20120403
  Serious: Yes (Hospitalization)
  Sender: FDA-Public Use
  Company Number: US-ROCHE-1011519

PATIENT
  Sex: Male

DRUGS (6)
  1. BELATACEPT [Suspect]
     Indication: RENAL TRANSPLANT
     Dosage: DOSE IS BLINDED
     Route: 042
     Dates: start: 20060503, end: 20060713
  2. METHYLPREDNISOLONE [Concomitant]
     Route: 042
     Dates: start: 20060717, end: 20060717
  3. PREDNISONE TAB [Suspect]
     Indication: PRODUCT USED FOR UNKNOWN INDICATION
     Dates: start: 20060503
  4. PROGRAF [Concomitant]
     Dates: start: 20060726
  5. MYCOPHENOLATE MOFETIL (CELLCEPT) [Suspect]
     Indication: PRODUCT USED FOR UNKNOWN INDICATION
     Dates: start: 20060503
  6. THYMOGLOBULIN [Concomitant]
     Dates: start: 20060718, end: 20060727

REACTIONS (5)
  - EPSTEIN-BARR VIRUS ASSOCIATED LYMPHOPROLIFERATIVE DISORDER [None]
  - RENAL HAEMORRHAGE [None]
  - KIDNEY TRANSPLANT REJECTION [None]
  - BK VIRUS INFECTION [None]
  - NEUTROPENIA [None]
